FAERS Safety Report 9174343 (Version 1)
Quarter: 2013Q1

REPORT INFORMATION
  Report Type: Spontaneous
  Country: US (occurrence: US)
  Receive Date: 20130320
  Receipt Date: 20130320
  Transmission Date: 20140127
  Serious: Yes (Other)
  Sender: FDA-Public Use
  Company Number: PHEH2013US006212

PATIENT
  Age: 50 Year
  Sex: Female

DRUGS (2)
  1. DIOVAN [Suspect]
     Indication: BLOOD PRESSURE ABNORMAL
     Dosage: 160 MG, UNK
  2. LISINOPRIL [Suspect]
     Dosage: UNK UKN, UNK

REACTIONS (2)
  - Cerebrovascular accident [Unknown]
  - Cough [Unknown]
